FAERS Safety Report 6714198-3 (Version None)
Quarter: 2010Q2

REPORT INFORMATION
  Report Type: 
  Country: None (occurrence: None)
  Receive Date: 20100506
  Receipt Date: 20100426
  Transmission Date: 20101027
  Serious: Yes (Death)
  Sender: FDA-Public Use
  Company Number: GR-GILEAD-E2B_00000695

PATIENT
  Age: 67 Year
  Sex: Male

DRUGS (4)
  1. AMBRISENTAN [Suspect]
     Indication: PULMONARY HYPERTENSION
     Dosage: 5MG PER DAY
     Route: 065
  2. ACE INHIBITOR [Concomitant]
  3. FUROSEMIDE [Concomitant]
  4. SPIRONOLACTONE [Concomitant]

REACTIONS (4)
  - ARRHYTHMIA [None]
  - CARDIAC FAILURE [None]
  - EJECTION FRACTION [None]
  - PULMONARY OEDEMA [None]
